FAERS Safety Report 4864512-9 (Version None)
Quarter: 2005Q4

REPORT INFORMATION
  Report Type: 
  Country: None (occurrence: None)
  Receive Date: 20051222
  Receipt Date: 20051214
  Transmission Date: 20060501
  Serious: Yes (Hospitalization)
  Sender: FDA-Public Use
  Company Number: US-ROCHE-428717

PATIENT
  Age: 82 Year
  Sex: Female
  Weight: 60.8 kg

DRUGS (3)
  1. BONIVA [Suspect]
     Indication: OSTEOPOROSIS
     Route: 048
     Dates: start: 20051115, end: 20051115
  2. CALCIUM GLUCONATE [Concomitant]
     Route: 048
  3. PAIN MEDICATION NOS [Concomitant]
     Route: 048

REACTIONS (1)
  - GASTRIC HAEMORRHAGE [None]
